FAERS Safety Report 8583100-4 (Version None)
Quarter: 2012Q3

REPORT INFORMATION
  Report Type: 
  Country: None (occurrence: None)
  Receive Date: 20120809
  Receipt Date: 20120803
  Transmission Date: 20120928
  Serious: No
  Sender: FDA-Public Use
  Company Number: US-B.I. PHARMACEUTICALS,INC./RIDGEFIELD-2012-BP-17506BP

PATIENT
  Sex: Female

DRUGS (2)
  1. ZANTAC [Suspect]
  2. ZANTAC [Suspect]
     Indication: DYSPEPSIA
     Dosage: 300 MG
     Route: 048
     Dates: start: 20120701

REACTIONS (2)
  - DIARRHOEA [None]
  - DYSPEPSIA [None]
